FAERS Safety Report 7898849-6 (Version None)
Quarter: 2011Q4

REPORT INFORMATION
  Report Type: 
  Country: None (occurrence: None)
  Receive Date: 20111107
  Receipt Date: 20111031
  Transmission Date: 20120403
  Serious: Yes (Hospitalization, Other)
  Sender: FDA-Public Use
  Company Number: ES-ELI_LILLY_AND_COMPANY-ES201111000351

PATIENT
  Age: 73 Year
  Sex: Female

DRUGS (3)
  1. GEMZAR [Suspect]
     Indication: MANTLE CELL LYMPHOMA
     Dosage: 2375 MG, EVERY 21 DAYS
     Dates: start: 20101222, end: 20110323
  2. CARBOPLATIN [Concomitant]
     Indication: MANTLE CELL LYMPHOMA
     Dosage: 355 MG, EVERY 21 DAYS
     Route: 042
     Dates: start: 20110203, end: 20110323
  3. CISPLATIN [Concomitant]
     Dosage: UNK, ONE CYCLE ONLY
     Dates: start: 20101222

REACTIONS (6)
  - THROMBOCYTOPENIA [None]
  - RENAL IMPAIRMENT [None]
  - ANAEMIA [None]
  - NEUTROPENIA [None]
  - RECTAL HAEMORRHAGE [None]
  - OFF LABEL USE [None]
